FAERS Safety Report 24039762 (Version 1)
Quarter: 2024Q3

REPORT INFORMATION
  Report Type: Spontaneous
  Country: US (occurrence: US)
  Receive Date: 20240702
  Receipt Date: 20240702
  Transmission Date: 20241016
  Serious: Yes (Hospitalization, Other)
  Sender: RANBAXY
  Company Number: US-SUN PHARMACEUTICAL INDUSTRIES LTD-2024R1-453559

PATIENT
  Age: 36 Year
  Sex: Male

DRUGS (2)
  1. METFORMIN\SITAGLIPTIN [Suspect]
     Active Substance: METFORMIN\SITAGLIPTIN
     Indication: Diabetes mellitus
     Dosage: 50 MILLIGRAM
     Route: 065
  2. METFORMIN\SITAGLIPTIN [Suspect]
     Active Substance: METFORMIN\SITAGLIPTIN
     Dosage: 500 MILLIGRAM
     Route: 065

REACTIONS (6)
  - Neuropathy peripheral [Unknown]
  - Restless legs syndrome [Unknown]
  - Diabetic ketoacidosis [Unknown]
  - Tachypnoea [Unknown]
  - Palpitations [Unknown]
  - Type 1 diabetes mellitus [Unknown]
